FAERS Safety Report 21773425 (Version 1)
Quarter: 2022Q4

REPORT INFORMATION
  Report Type: Spontaneous
  Country: ES (occurrence: ES)
  Receive Date: 20221223
  Receipt Date: 20221223
  Transmission Date: 20230112
  Serious: Yes (Other)
  Sender: FDA-Public Use
  Company Number: ae001ES22

PATIENT
  Sex: Female

DRUGS (1)
  1. POLIDOCANOL [Suspect]
     Active Substance: POLIDOCANOL
     Indication: Product used for unknown indication
     Route: 042

REACTIONS (3)
  - Loss of consciousness [Unknown]
  - Drug hypersensitivity [Unknown]
  - Anal sphincter atony [Unknown]
